FAERS Safety Report 11324463 (Version 1)
Quarter: 2015Q3

REPORT INFORMATION
  Report Type: Spontaneous
  Country: IT (occurrence: IT)
  Receive Date: 20150730
  Receipt Date: 20150730
  Transmission Date: 20151125
  Serious: Yes (Hospitalization)
  Sender: FDA-Public Use
  Company Number: IT-BAYER-2015-389495

PATIENT
  Age: 87 Year
  Sex: Female

DRUGS (6)
  1. CATAPRES-TTS [Concomitant]
     Active Substance: CLONIDINE
     Dosage: UNK
     Route: 062
  2. SEQUACOR [Concomitant]
     Active Substance: BISOPROLOL
     Dosage: UNK
     Route: 048
  3. CRESTOR [Concomitant]
     Active Substance: ROSUVASTATIN CALCIUM
     Route: 048
  4. HALCION [Concomitant]
     Active Substance: TRIAZOLAM
     Route: 048
  5. CARDIOASPIRIN [Suspect]
     Active Substance: ASPIRIN
     Indication: PROPHYLAXIS
     Dosage: DAILY DOSE 100 MG
     Route: 048
     Dates: start: 20140701, end: 20150719
  6. PANTOPAN [Concomitant]
     Active Substance: PANTOPRAZOLE SODIUM
     Route: 048

REACTIONS (1)
  - Subdural haematoma [Recovering/Resolving]

NARRATIVE: CASE EVENT DATE: 20150720
